FAERS Safety Report 16777166 (Version 5)
Quarter: 2020Q3

REPORT INFORMATION
  Report Type: Report from Study
  Country: US (occurrence: US)
  Receive Date: 20190905
  Receipt Date: 20200731
  Transmission Date: 20201102
  Serious: Yes (Other)
  Sender: FDA-Public Use
  Company Number: US-EMD SERONO-9102393

PATIENT
  Age: 33 Year
  Sex: Female

DRUGS (2)
  1. MAVENCLAD [Suspect]
     Active Substance: CLADRIBINE
     Dosage: FIRST YEAR SECOND WEEK THERAPY
     Route: 048
     Dates: start: 20190629, end: 20190704
  2. MAVENCLAD [Suspect]
     Active Substance: CLADRIBINE
     Indication: MULTIPLE SCLEROSIS
     Dosage: FIRST YEAR FIRST WEEK THERAPY
     Route: 048
     Dates: start: 20190603, end: 20190607

REACTIONS (10)
  - Ear infection [Unknown]
  - Malaise [Unknown]
  - Eczema [Unknown]
  - Product administration error [Unknown]
  - Nasal congestion [Unknown]
  - Abscess [Recovering/Resolving]
  - Furuncle [Unknown]
  - Dermatitis atopic [Unknown]
  - Staphylococcal infection [Recovering/Resolving]
  - Sinus pain [Unknown]

NARRATIVE: CASE EVENT DATE: 20190629
